FAERS Safety Report 6708409-8 (Version None)
Quarter: 2010Q2

REPORT INFORMATION
  Report Type: 
  Country: None (occurrence: None)
  Receive Date: 20100503
  Receipt Date: 20091203
  Transmission Date: 20101027
  Serious: No
  Sender: FDA-Public Use
  Company Number: US-ASTRAZENECA-2009SE30082

PATIENT
  Age: 10726 Day
  Sex: Male
  Weight: 104.3 kg

DRUGS (3)
  1. NEXIUM [Suspect]
     Indication: FOOD POISONING
     Dosage: 40 MG
     Route: 048
     Dates: start: 20090901
  2. NEXIUM [Suspect]
     Route: 048
     Dates: start: 20091201, end: 20091201
  3. NEXIUM [Suspect]
     Dosage: 40 MG TWICE A DAY
     Route: 048
     Dates: start: 20091202, end: 20091202

REACTIONS (2)
  - ABDOMINAL DISTENSION [None]
  - WRONG DRUG ADMINISTERED [None]
